FAERS Safety Report 7017390-6 (Version None)
Quarter: 2010Q3

REPORT INFORMATION
  Report Type: 
  Country: None (occurrence: None)
  Receive Date: 20100928
  Receipt Date: 20100922
  Transmission Date: 20110219
  Serious: Yes (Hospitalization, Other)
  Sender: FDA-Public Use
  Company Number: FR-BRISTOL-MYERS SQUIBB COMPANY-15290992

PATIENT
  Age: 46 Year
  Sex: Male
  Weight: 130 kg

DRUGS (7)
  1. ABILIFY [Suspect]
     Indication: CHILDHOOD PSYCHOSIS
     Dosage: FOR A YEAR AND A HALF TO 2 YEARS;DOSE MAINTAINED AT 30MG/D
     Route: 048
     Dates: start: 20080101
  2. HALDOL [Concomitant]
  3. LEPTICUR [Concomitant]
  4. OGAST [Concomitant]
  5. SOLIAN [Concomitant]
  6. HAVLANE [Concomitant]
  7. BIPERIDYS [Concomitant]

REACTIONS (6)
  - COMA [None]
  - HYPERGLYCAEMIA [None]
  - HYPERTRIGLYCERIDAEMIA [None]
  - KETOACIDOSIS [None]
  - VISUAL IMPAIRMENT [None]
  - WEIGHT DECREASED [None]
